FAERS Safety Report 9556159 (Version 2)
Quarter: 2013Q4

REPORT INFORMATION
  Report Type: Spontaneous
  Country: SZ (occurrence: None)
  Receive Date: 20130924
  Receipt Date: 20131106
  Transmission Date: 20140711
  Serious: Yes (Hospitalization)
  Sender: FDA-Public Use
  Company Number: 20130498

PATIENT
  Age: 33 Year
  Sex: Female
  Weight: 66.3 kg

DRUGS (4)
  1. FERINJECT [Suspect]
     Indication: IRON DEFICIENCY ANAEMIA
     Dates: start: 20130820, end: 20130820
  2. FERRUM HAUSMANN CAPSULES (FERROUS FUMARATE) [Concomitant]
  3. GYNIPRAL (HEXOPRENALINE SULFATE) [Concomitant]
  4. MAGNESIOCARD (MAGNESIUM ASPARTATE HYDROCHLORIDE) [Concomitant]

REACTIONS (6)
  - Exposure during pregnancy [None]
  - Uterine hypertonus [None]
  - Pre-eclampsia [None]
  - Caesarean section [None]
  - Liver function test abnormal [None]
  - Premature delivery [None]
